FAERS Safety Report 6936661-2 (Version None)
Quarter: 2010Q3

REPORT INFORMATION
  Report Type: 
  Country: None (occurrence: None)
  Receive Date: 20100823
  Receipt Date: 20100811
  Transmission Date: 20110219
  Serious: Yes (Other)
  Sender: FDA-Public Use
  Company Number: US-JNJFOC-20100601579

PATIENT
  Sex: Female
  Weight: 98.88 kg

DRUGS (1)
  1. REMICADE [Suspect]
     Indication: CROHN'S DISEASE
     Route: 042

REACTIONS (5)
  - ABASIA [None]
  - ABDOMINAL PAIN [None]
  - ARTHRALGIA [None]
  - PAIN [None]
  - RASH [None]
